APPROVED DRUG PRODUCT: DEXTROSE 50%
Active Ingredient: DEXTROSE
Strength: 500MG/ML
Dosage Form/Route: INJECTABLE;INJECTION
Application: N019445 | Product #001 | TE Code: AP
Applicant: HOSPIRA INC
Approved: Jun 3, 1986 | RLD: Yes | RS: No | Type: RX